FAERS Safety Report 4608945-4 (Version None)
Quarter: 2005Q1

REPORT INFORMATION
  Report Type: 
  Country: None (occurrence: None)
  Receive Date: 20050315
  Receipt Date: 20050304
  Transmission Date: 20050727
  Serious: Yes (Death, Other)
  Sender: FDA-Public Use
  Company Number: AU-NOVOPROD-242694

PATIENT
  Sex: Female

DRUGS (2)
  1. NOVOSEVEN [Suspect]
     Indication: HAEMORRHAGE
     Dosage: 1.2 MG, UNK
  2. NOVOSEVEN [Suspect]
     Dosage: 4.8 MG, UNK

REACTIONS (2)
  - ACIDOSIS [None]
  - SEPTIC SHOCK [None]
